FAERS Safety Report 8509510-9 (Version None)
Quarter: 2012Q3

REPORT INFORMATION
  Report Type: 
  Country: None (occurrence: None)
  Receive Date: 20120713
  Receipt Date: 20120709
  Transmission Date: 20120928
  Serious: Yes (Other)
  Sender: FDA-Public Use
  Company Number: US-PFIZER INC-2012108192

PATIENT
  Sex: Female

DRUGS (10)
  1. BACLOFEN [Concomitant]
     Dosage: UNK
  2. IMURAN [Concomitant]
     Dosage: UNK
  3. PRILOSEC [Concomitant]
     Dosage: UNK
  4. MULTI-VITAMINS [Concomitant]
     Dosage: UNK
  5. LYRICA [Suspect]
     Dosage: 150 MG, 2X/DAY
  6. TRAZODONE [Concomitant]
     Dosage: UNK
  7. OMEGA [Concomitant]
     Dosage: UNK
  8. REMICADE [Concomitant]
  9. METFORMIN [Concomitant]
     Dosage: UNK
  10. CELEBREX [Concomitant]
     Dosage: UNK

REACTIONS (1)
  - INTERVERTEBRAL DISC DISORDER [None]
